FAERS Safety Report 18241153 (Version 1)
Quarter: 2020Q3

REPORT INFORMATION
  Report Type: Spontaneous
  Country: US (occurrence: US)
  Receive Date: 20200906
  Receipt Date: 20200906
  Transmission Date: 20201103
  Serious: Yes (Other)
  Sender: FDA-Public Use
  Company Number: None

PATIENT
  Age: 28 Year
  Sex: Female
  Weight: 69.75 kg

DRUGS (8)
  1. ALGAL OIL SUPPLEMENT [Concomitant]
  2. PROZAC [Concomitant]
     Active Substance: FLUOXETINE HYDROCHLORIDE
  3. ORTHO MICRONOR .35MG [Concomitant]
  4. SYNTHROID [Concomitant]
     Active Substance: LEVOTHYROXINE SODIUM
  5. DOXEPIN 10MG [Concomitant]
  6. D3 SUPPLEMENT [Concomitant]
  7. ORILISSA [Suspect]
     Active Substance: ELAGOLIX SODIUM
     Indication: ENDOMETRIOSIS
     Dates: start: 20190201, end: 20191231
  8. MULTIVITAMIN [Concomitant]
     Active Substance: VITAMINS

REACTIONS (3)
  - Weight increased [None]
  - Autoimmune disorder [None]
  - Autoimmune thyroiditis [None]

NARRATIVE: CASE EVENT DATE: 20190710
